FAERS Safety Report 8736917 (Version 6)
Quarter: 2012Q4

REPORT INFORMATION
  Report Type: Report from Study
  Country: US (occurrence: US)
  Receive Date: 20120822
  Receipt Date: 20121004
  Transmission Date: 20130627
  Serious: Yes (Hospitalization)
  Sender: FDA-Public Use
  Company Number: US-AMGEN-USACT2012052437

PATIENT
  Age: 66 Year
  Sex: Female
  Weight: 189.57 kg

DRUGS (13)
  1. DARBEPOETIN ALFA [Suspect]
     Indication: CARDIAC FAILURE
     Dosage: UNK UNK, q2wk
     Route: 058
     Dates: start: 20070124, end: 20120805
  2. HUMALOG [Concomitant]
  3. LANTUS [Concomitant]
  4. BYETTA [Concomitant]
  5. LIPITOR [Concomitant]
  6. BACTRIM DS [Concomitant]
  7. NORVASC [Concomitant]
  8. LISINOPRIL [Concomitant]
     Dosage: 40 mg, UNK
  9. ALLEGRA [Concomitant]
  10. METFORMIN [Concomitant]
  11. COREG [Concomitant]
     Dosage: 37.5 mg, bid
  12. ALLOPURINOL [Concomitant]
  13. LASIX [Concomitant]
     Dosage: 80 mg, UNK

REACTIONS (3)
  - Transient ischaemic attack [Recovered/Resolved with Sequelae]
  - Cerebrovascular accident [Recovered/Resolved with Sequelae]
  - Carotid artery occlusion [Recovered/Resolved with Sequelae]
